FAERS Safety Report 8795689 (Version 1)
Quarter: 2012Q4

REPORT INFORMATION
  Report Type: 
  Country: US (occurrence: US)
  Receive Date: 20120920
  Receipt Date: 20120920
  Transmission Date: 20130627
  Serious: Yes (Other)
  Sender: FDA-Public Use
  Company Number: US-ALLERGAN-1212709US

PATIENT
  Sex: Female

DRUGS (2)
  1. BOTOX COSMETIC [Suspect]
     Indication: CROW^S FEET
     Dosage: UNK UNK, single
  2. JUVEDERM [Suspect]

REACTIONS (7)
  - Cellulitis [Unknown]
  - Contusion [Unknown]
  - Eye pain [Unknown]
  - Sensation of pressure [Unknown]
  - Sensation of foreign body [Unknown]
  - Pyrexia [Unknown]
  - Periorbital oedema [Unknown]
